FAERS Safety Report 23445924 (Version 2)
Quarter: 2024Q1

REPORT INFORMATION
  Report Type: Spontaneous
  Country: JP (occurrence: JP)
  Receive Date: 20240126
  Receipt Date: 20240318
  Transmission Date: 20240410
  Serious: Yes (Hospitalization)
  Sender: FDA-Public Use
  Company Number: JP-TAKEDA-2023TJP015789

PATIENT
  Age: 9 Decade
  Sex: Male

DRUGS (1)
  1. AGRYLIN [Suspect]
     Active Substance: ANAGRELIDE HYDROCHLORIDE
     Indication: Essential thrombocythaemia
     Dosage: UNK
     Route: 065

REACTIONS (3)
  - Hospitalisation [Recovered/Resolved]
  - Off label use [Recovered/Resolved]
  - Incorrect route of product administration [Unknown]
